FAERS Safety Report 17804564 (Version 1)
Quarter: 2020Q2

REPORT INFORMATION
  Report Type: Report from Study
  Country: US (occurrence: US)
  Receive Date: 20200519
  Receipt Date: 20200519
  Transmission Date: 20200714
  Serious: Yes (Death)
  Sender: FDA-Public Use
  Company Number: US-TAIHO ONCOLOGY  INC-EU-2020-01693

PATIENT
  Sex: Female
  Weight: 83.08 kg

DRUGS (15)
  1. VANCOMYCIN [Concomitant]
     Active Substance: VANCOMYCIN
  2. LIDOCAINE. [Concomitant]
     Active Substance: LIDOCAINE
  3. FUROSEMIDE. [Concomitant]
     Active Substance: FUROSEMIDE
  4. OMEPRAZOLE. [Concomitant]
     Active Substance: OMEPRAZOLE
  5. LONSURF [Suspect]
     Active Substance: TIPIRACIL HYDROCHLORIDE\TRIFLURIDINE
     Indication: COLON CANCER
     Dosage: CYCLE 1
     Route: 048
  6. PROCHLORPERAZINE. [Concomitant]
     Active Substance: PROCHLORPERAZINE
  7. LIDOCAINE/PRILOCAINE [Concomitant]
     Active Substance: LIDOCAINE\PRILOCAINE
  8. ONDANSETRON [Concomitant]
     Active Substance: ONDANSETRON
  9. LOPERAMIDE [Concomitant]
     Active Substance: LOPERAMIDE
  10. ACETAMINOPHEN. [Concomitant]
     Active Substance: ACETAMINOPHEN
  11. POTASSIUM [Concomitant]
     Active Substance: POTASSIUM
  12. MORPHINE [Concomitant]
     Active Substance: MORPHINE
  13. LORAZEPAM. [Concomitant]
     Active Substance: LORAZEPAM
  14. DIPHENHYDRAMINE. [Concomitant]
     Active Substance: DIPHENHYDRAMINE
  15. TUSSIONEX PENNKINETIC [Concomitant]
     Active Substance: CHLORPHENIRAMINE\HYDROCODONE

REACTIONS (1)
  - Death [Fatal]
